FAERS Safety Report 16291724 (Version 2)
Quarter: 2019Q4

REPORT INFORMATION
  Report Type: Spontaneous
  Country: TR (occurrence: TR)
  Receive Date: 20190509
  Receipt Date: 20191127
  Transmission Date: 20200122
  Serious: No
  Sender: FDA-Public Use
  Company Number: TR-BAYER-2019-087212

PATIENT
  Age: 93 Year
  Sex: Male

DRUGS (2)
  1. MOXIFLOXACIN IV [Suspect]
     Active Substance: MOXIFLOXACIN
     Indication: PNEUMONIA
     Dosage: UNK
  2. CEFTRIAXONE. [Suspect]
     Active Substance: CEFTRIAXONE
     Indication: PNEUMONIA
     Dosage: UNK

REACTIONS (1)
  - Drug ineffective [None]
